FAERS Safety Report 10019779 (Version 2)
Quarter: 2014Q1

REPORT INFORMATION
  Report Type: Spontaneous
  Country: US (occurrence: US)
  Receive Date: 20140318
  Receipt Date: 20140318
  Transmission Date: 20141002
  Serious: No
  Sender: FDA-Public Use
  Company Number: US-GALDERMA-US13003903

PATIENT
  Age: 31 Year
  Sex: Female

DRUGS (4)
  1. MIRVASO (BRIMONIDINE) TOPICAL GEL, 0.33% [Suspect]
     Indication: ROSACEA
     Dosage: 0.33%
     Route: 061
     Dates: start: 20131011, end: 20131129
  2. DOXYCYCLINE HYCLATE [Concomitant]
     Indication: ROSACEA
     Dosage: 100 MG
     Route: 048
     Dates: start: 20131129
  3. ADDERALL XR [Concomitant]
     Indication: ATTENTION DEFICIT/HYPERACTIVITY DISORDER
     Route: 048
     Dates: start: 20131107
  4. ADVIL [Concomitant]
     Indication: HEADACHE
     Route: 048

REACTIONS (7)
  - Condition aggravated [Recovered/Resolved]
  - Swelling face [Recovered/Resolved]
  - Feeling hot [Recovered/Resolved]
  - Erythema [Recovered/Resolved]
  - Pain of skin [Recovered/Resolved]
  - Dermatitis [Recovered/Resolved]
  - Drug ineffective [Recovered/Resolved]
